FAERS Safety Report 9028260 (Version 1)
Quarter: 2013Q1

REPORT INFORMATION
  Report Type: Spontaneous
  Country: US (occurrence: None)
  Receive Date: 20130115
  Receipt Date: 20130115
  Transmission Date: 20140127
  Serious: No
  Sender: FDA-Public Use
  Company Number: None

PATIENT
  Sex: Female
  Weight: 66.23 kg

DRUGS (1)
  1. LEFLUNOMIDE [Suspect]
     Indication: PSORIATIC ARTHROPATHY
     Route: 048
     Dates: start: 20120912, end: 20121212

REACTIONS (9)
  - Rash [None]
  - Erythema [None]
  - Genital burning sensation [None]
  - Pruritus genital [None]
  - Pollakiuria [None]
  - Weight increased [None]
  - Abdominal distension [None]
  - Back pain [None]
  - Abdominal distension [None]
